FAERS Safety Report 16766860 (Version 2)
Quarter: 2019Q3

REPORT INFORMATION
  Report Type: Spontaneous
  Country: US (occurrence: US)
  Receive Date: 20190903
  Receipt Date: 20190903
  Transmission Date: 20191005
  Serious: No
  Sender: FDA-Public Use
  Company Number: US-PFIZER INC-2019376200

PATIENT
  Age: 24 Year
  Sex: Male

DRUGS (1)
  1. PREGABALIN. [Suspect]
     Active Substance: PREGABALIN
     Indication: NEUROPATHY PERIPHERAL
     Dosage: UNK , 3X/DAY (3 DAYS THE GENERIC 3 TIMES A DAY, A TOTAL OF 9 PILLS)

REACTIONS (4)
  - Malaise [Unknown]
  - Heart rate increased [Unknown]
  - Dyspnoea [Unknown]
  - Headache [Unknown]
